FAERS Safety Report 9105924 (Version 1)
Quarter: 2013Q1

REPORT INFORMATION
  Report Type: Spontaneous
  Country: GB (occurrence: GB)
  Receive Date: 20130220
  Receipt Date: 20130220
  Transmission Date: 20140127
  Serious: Yes (Other)
  Sender: FDA-Public Use
  Company Number: GB-ELI_LILLY_AND_COMPANY-GB201302003061

PATIENT
  Sex: Female

DRUGS (1)
  1. HUMALOG LISPRO [Suspect]
     Indication: DIABETES MELLITUS
     Dosage: UNK

REACTIONS (4)
  - Cerebrovascular accident [Unknown]
  - Diabetes mellitus inadequate control [Not Recovered/Not Resolved]
  - Memory impairment [Unknown]
  - Blood glucose decreased [Unknown]
